FAERS Safety Report 13134502 (Version 1)
Quarter: 2017Q1

REPORT INFORMATION
  Report Type: Spontaneous
  Country: US (occurrence: US)
  Receive Date: 20170120
  Receipt Date: 20170120
  Transmission Date: 20170428
  Serious: No
  Sender: FDA-Public Use
  Company Number: US-JNJFOC-20170100789

PATIENT
  Sex: Female

DRUGS (1)
  1. TOPAMAX [Suspect]
     Active Substance: TOPIRAMATE
     Indication: ANALGESIC THERAPY
     Dosage: 3-2-3
     Route: 048

REACTIONS (2)
  - Off label use [Unknown]
  - Product use issue [Unknown]
